FAERS Safety Report 24770890 (Version 1)
Quarter: 2024Q4

REPORT INFORMATION
  Report Type: Spontaneous
  Country: US (occurrence: None)
  Receive Date: 20241223
  Receipt Date: 20241223
  Transmission Date: 20250114
  Serious: Yes (Disabling)
  Sender: Public
  Company Number: None

PATIENT
  Age: 73 Year
  Sex: Male
  Weight: 104.4 kg

DRUGS (10)
  1. SYSTANE LUBRICANT [Suspect]
     Active Substance: POLYETHYLENE GLYCOL 400\PROPYLENE GLYCOL
     Indication: Dry eye
     Dosage: 25 DROPS AS NEEDED OPHTHALMIC
     Route: 047
     Dates: start: 20240102, end: 20240418
  2. AMLODIPINE BESYLATE [Concomitant]
     Active Substance: AMLODIPINE BESYLATE
  3. ATORVASTATIN [Concomitant]
     Active Substance: ATORVASTATIN
  4. Hydrochlorozide [Concomitant]
  5. Glucose monitor [Concomitant]
  6. VITAMIN B [Concomitant]
     Active Substance: VITAMIN B
  7. D [Concomitant]
  8. COENZYME Q10 [Concomitant]
     Active Substance: DIETARY SUPPLEMENT\UBIDECARENONE
  9. ASPIRIN [Concomitant]
     Active Substance: ASPIRIN
  10. FOLIC ACID [Concomitant]
     Active Substance: FOLIC ACID

REACTIONS (2)
  - Eye irritation [None]
  - Immune system disorder [None]

NARRATIVE: CASE EVENT DATE: 20240311
